FAERS Safety Report 18546546 (Version 1)
Quarter: 2020Q4

REPORT INFORMATION
  Report Type: Spontaneous
  Country: NL (occurrence: DE)
  Receive Date: 20201125
  Receipt Date: 20201125
  Transmission Date: 20210114
  Serious: Yes (Hospitalization)
  Sender: FDA-Public Use
  Company Number: DE-FRESENIUS KABI-FK202012376

PATIENT
  Age: 66 Year
  Sex: Male

DRUGS (4)
  1. BEVACIZUMAB. [Suspect]
     Active Substance: BEVACIZUMAB
     Indication: COLORECTAL CANCER METASTATIC
     Dosage: PHARMACEUTICAL DOSE FORM (FREE TEXT): INFUSION, SOLUTION?PARENT ROUTE OF ADMINISTRATION (FREE TEXT):
     Route: 065
  2. FLUOROURACIL/CALCIUM FOLINATE/IRINOTECAN HYDROCHLORIDE [Suspect]
     Active Substance: FLUOROURACIL\IRINOTECAN\LEUCOVORIN
     Indication: PRODUCT USED FOR UNKNOWN INDICATION
     Dosage: PHARMACEUTICAL DOSE FORM (FREE TEXT): UNKNOWN ?PARENT ROUTE OF ADMINISTRATION (FREE TEXT): UNKNOWN
     Route: 065
  3. LEUCOVORIN CALCIUM (MANUFACTURER UNKNOWN) [Suspect]
     Active Substance: LEUCOVORIN CALCIUM
     Indication: PRODUCT USED FOR UNKNOWN INDICATION
     Dosage: PHARMACEUTICAL DOSE FORM (FREE TEXT): UNKNOWN ?PARENT ROUTE OF ADMINISTRATION (FREE TEXT): UNKNOWN
     Route: 065
  4. IRINOTECAN (MANUFACTURER UNKNOWN) [Suspect]
     Active Substance: IRINOTECAN
     Indication: PRODUCT USED FOR UNKNOWN INDICATION
     Dosage: PHARMACEUTICAL DOSE FORM (FREE TEXT): UNKNOWN ?PARENT ROUTE OF ADMINISTRATION (FREE TEXT): UNKNOWN
     Route: 065

REACTIONS (2)
  - Peritonitis [Unknown]
  - Small intestinal perforation [Unknown]
